FAERS Safety Report 21063446 (Version 1)
Quarter: 2022Q3

REPORT INFORMATION
  Report Type: Other
  Country: None (occurrence: TR)
  Receive Date: 20220711
  Receipt Date: 20220711
  Transmission Date: 20221027
  Serious: Yes (Other)
  Sender: FDA-Public Use
  Company Number: TR-Ajanta Pharma USA Inc.-2130711

PATIENT
  Age: 46 Year
  Sex: Female

DRUGS (1)
  1. TOFACITINIB CITRATE [Suspect]
     Active Substance: TOFACITINIB CITRATE
     Indication: Alopecia areata

REACTIONS (1)
  - Multiple sclerosis [Recovering/Resolving]
